FAERS Safety Report 19757487 (Version 1)
Quarter: 2021Q3

REPORT INFORMATION
  Report Type: Report from Study
  Country: CA (occurrence: CA)
  Receive Date: 20210827
  Receipt Date: 20210827
  Transmission Date: 20211014
  Serious: Yes (Death, Hospitalization)
  Sender: FDA-Public Use
  Company Number: CA-OTSUKA-2021_028465

PATIENT
  Age: 63 Year
  Sex: Male

DRUGS (1)
  1. CEDAZURIDINE AND DECITABINE [Suspect]
     Active Substance: CEDAZURIDINE\DECITABINE
     Indication: MYELODYSPLASTIC SYNDROME
     Dosage: UNK
     Route: 065
     Dates: start: 20210807

REACTIONS (9)
  - Initial insomnia [Unknown]
  - Fall [Unknown]
  - Back pain [Unknown]
  - Chest pain [Unknown]
  - Illness [Unknown]
  - Contusion [Unknown]
  - Cancer surgery [Fatal]
  - Adrenal disorder [Unknown]
  - Constipation [Unknown]

NARRATIVE: CASE EVENT DATE: 202108
